FAERS Safety Report 6234693-3 (Version None)
Quarter: 2009Q2

REPORT INFORMATION
  Report Type: 
  Country: None (occurrence: None)
  Receive Date: 20090618
  Receipt Date: 20090616
  Transmission Date: 20091009
  Serious: Yes (Hospitalization)
  Sender: FDA-Public Use
  Company Number: FR-ASTRAZENECA-2009CG01258

PATIENT
  Age: 31781 Day
  Sex: Female

DRUGS (8)
  1. NEXIUM [Suspect]
     Route: 048
     Dates: start: 20090318, end: 20090326
  2. COZAAR [Suspect]
     Indication: HYPERTENSION
     Route: 048
     Dates: start: 20090201, end: 20090328
  3. XALACOM [Suspect]
     Indication: OCULAR HYPERTENSION
     Route: 031
     Dates: start: 20090311, end: 20090331
  4. SECTRAL [Suspect]
     Indication: HYPERTENSION
     Route: 048
     Dates: start: 20090313, end: 20090327
  5. MOTILIUM [Suspect]
     Indication: GASTROOESOPHAGEAL REFLUX DISEASE
     Route: 048
     Dates: start: 20090314, end: 20090326
  6. SERESTA [Suspect]
     Route: 048
     Dates: start: 20090201, end: 20090328
  7. TAHOR [Concomitant]
     Dates: start: 20090201
  8. GAVISCON [Concomitant]
     Dates: start: 20090318, end: 20090326

REACTIONS (1)
  - LIP SWELLING [None]
